FAERS Safety Report 18156913 (Version 1)
Quarter: 2020Q3

REPORT INFORMATION
  Report Type: Spontaneous
  Country: US (occurrence: US)
  Receive Date: 20200815
  Receipt Date: 20200815
  Transmission Date: 20201103
  Serious: Yes (Hospitalization)
  Sender: FDA-Public Use
  Company Number: None

PATIENT
  Age: 67 Year
  Sex: Female
  Weight: 71.9 kg

DRUGS (2)
  1. OLANZAPINE. [Suspect]
     Active Substance: OLANZAPINE
     Dates: end: 20200730
  2. ALOXI [Suspect]
     Active Substance: PALONOSETRON HYDROCHLORIDE
     Dates: end: 20200727

REACTIONS (6)
  - Oesophageal ulcer [None]
  - Herpes oesophagitis [None]
  - Dysphagia [None]
  - Deep vein thrombosis [None]
  - Oral candidiasis [None]
  - Hiatus hernia [None]

NARRATIVE: CASE EVENT DATE: 20200803
